FAERS Safety Report 17747637 (Version 2)
Quarter: 2020Q2

REPORT INFORMATION
  Report Type: Spontaneous
  Country: US (occurrence: US)
  Receive Date: 20200505
  Receipt Date: 20200514
  Transmission Date: 20200714
  Serious: Yes (Other)
  Sender: FDA-Public Use
  Company Number: US-AMAG PHARMACEUTICALS, INC.-AMAG202001549

PATIENT
  Age: 0 Year
  Sex: Female
  Weight: 1.88 kg

DRUGS (1)
  1. MAKENA [Suspect]
     Active Substance: HYDROXYPROGESTERONE CAPROATE
     Indication: FOETAL EXPOSURE DURING PREGNANCY
     Route: 064

REACTIONS (4)
  - Milk allergy [Recovered/Resolved]
  - Low birth weight baby [Recovered/Resolved]
  - Premature baby [Recovered/Resolved]
  - Head circumference abnormal [Unknown]

NARRATIVE: CASE EVENT DATE: 2018
